FAERS Safety Report 7560562-2 (Version None)
Quarter: 2011Q2

REPORT INFORMATION
  Report Type: 
  Country: None (occurrence: None)
  Receive Date: 20110621
  Receipt Date: 20100503
  Transmission Date: 20111010
  Serious: No
  Sender: FDA-Public Use
  Company Number: US-ASTRAZENECA-2010SE19901

PATIENT
  Age: 71 Year
  Sex: Male
  Weight: 90.7 kg

DRUGS (4)
  1. POTASSIUM [Concomitant]
  2. LIPITOR [Concomitant]
  3. ENTOCORT EC [Suspect]
     Indication: DIARRHOEA
     Route: 048
     Dates: start: 20100401
  4. COUMADIN [Concomitant]

REACTIONS (2)
  - ENERGY INCREASED [None]
  - INSOMNIA [None]
